FAERS Safety Report 8338361-3 (Version None)
Quarter: 2012Q1

REPORT INFORMATION
  Report Type: 
  Country: None (occurrence: None)
  Receive Date: 20120329
  Receipt Date: 20090223
  Transmission Date: 20120608
  Serious: Yes (Other)
  Sender: FDA-Public Use
  Company Number: PHEH2009US01979

PATIENT
  Age: 71 Year
  Sex: Male

DRUGS (1)
  1. LAMISIL [Suspect]
     Dates: start: 20090209

REACTIONS (1)
  - RETINAL DISORDER [None]
